FAERS Safety Report 7064874-0 (Version None)
Quarter: 2010Q4

REPORT INFORMATION
  Report Type: 
  Country: None (occurrence: None)
  Receive Date: 20101027
  Receipt Date: 19911206
  Transmission Date: 20110411
  Serious: Yes (Death)
  Sender: FDA-Public Use
  Company Number: DE-ROCHE-910317602001

PATIENT
  Sex: Male

DRUGS (3)
  1. CEFTRIAXONE [Suspect]
     Indication: STAPHYLOCOCCAL SEPSIS
     Route: 042
     Dates: start: 19911022, end: 19911027
  2. GENTAMICIN [Concomitant]
     Indication: STAPHYLOCOCCAL SEPSIS
     Route: 042
     Dates: start: 19911022, end: 19911025
  3. METRONIDAZOLE [Concomitant]
     Indication: STAPHYLOCOCCAL SEPSIS
     Route: 042
     Dates: start: 19911022, end: 19911025

REACTIONS (2)
  - BLOOD BILIRUBIN INCREASED [None]
  - DISEASE PROGRESSION [None]
